FAERS Safety Report 25459639 (Version 1)
Quarter: 2025Q2

REPORT INFORMATION
  Report Type: Spontaneous
  Country: GB (occurrence: None)
  Receive Date: 20250620
  Receipt Date: 20250620
  Transmission Date: 20250717
  Serious: Yes (Other)
  Sender: ORION
  Company Number: None

PATIENT
  Age: 20 Year

DRUGS (1)
  1. METHOTREXATE [Suspect]
     Active Substance: METHOTREXATE
     Indication: Product used for unknown indication

REACTIONS (4)
  - Thermal burn [Unknown]
  - Pruritus [Unknown]
  - Rash papular [Unknown]
  - Food allergy [Unknown]
